FAERS Safety Report 4559684-X (Version None)
Quarter: 2005Q2

REPORT INFORMATION
  Report Type: 
  Country: None (occurrence: None)
  Receive Date: 20050114
  Receipt Date: 20040112
  Transmission Date: 20051028
  Serious: No
  Sender: FDA-Public Use
  Company Number: FEI2004-0011

PATIENT
  Age: 29 Year
  Sex: Female
  Weight: 61.2356 kg

DRUGS (1)
  1. INTRAUTERINE COPPER CONTRACEPTIVE [Suspect]
     Indication: CONTRACEPTION
     Dosage: NA, NA; INTRA-UTERINE
     Route: 015
     Dates: start: 20021023, end: 20031228

REACTIONS (1)
  - IUCD COMPLICATION [None]
